FAERS Safety Report 6067024-2 (Version None)
Quarter: 2009Q1

REPORT INFORMATION
  Report Type: 
  Country: None (occurrence: None)
  Receive Date: 20090205
  Receipt Date: 20030609
  Transmission Date: 20090719
  Serious: No
  Sender: FDA-Public Use
  Company Number: US-ABBOTT-08P-163-0469971-00

PATIENT

DRUGS (1)
  1. VICODIN [Suspect]
     Indication: DRUG USE FOR UNKNOWN INDICATION
     Route: 048

REACTIONS (4)
  - GINGIVAL PAIN [None]
  - PAIN [None]
  - SENSITIVITY OF TEETH [None]
  - TEMPERATURE INTOLERANCE [None]
